FAERS Safety Report 7109199-X (Version None)
Quarter: 2010Q4

REPORT INFORMATION
  Report Type: 
  Country: None (occurrence: None)
  Receive Date: 20101117
  Receipt Date: 20101104
  Transmission Date: 20110411
  Serious: Yes (Hospitalization, Other)
  Sender: FDA-Public Use
  Company Number: US-ELI_LILLY_AND_COMPANY-US201011001821

PATIENT
  Sex: Female

DRUGS (6)
  1. CYMBALTA [Suspect]
     Dosage: UNK, UNKNOWN
     Dates: start: 20060101
  2. CYMBALTA [Suspect]
     Dosage: 90 MG, DAILY (1/D)
     Dates: start: 20080101
  3. CYMBALTA [Suspect]
     Dosage: 30 MG, 2/D
  4. LYRICA [Concomitant]
  5. ASPIRIN [Concomitant]
  6. EXCEDRIN (MIGRAINE) [Concomitant]

REACTIONS (15)
  - ANGER [None]
  - ARTHRALGIA [None]
  - ARTHRITIS [None]
  - BEDRIDDEN [None]
  - CRYING [None]
  - DEPRESSION [None]
  - EMOTIONAL DISTRESS [None]
  - FEAR [None]
  - HYPERHIDROSIS [None]
  - HYPERSOMNIA [None]
  - KNEE OPERATION [None]
  - MEDICATION ERROR [None]
  - PAIN IN EXTREMITY [None]
  - PANIC ATTACK [None]
  - TEMPERATURE REGULATION DISORDER [None]
